FAERS Safety Report 5836074-0 (Version None)
Quarter: 2008Q3

REPORT INFORMATION
  Report Type: 
  Country: None (occurrence: None)
  Receive Date: 20080806
  Receipt Date: 20080731
  Transmission Date: 20090109
  Serious: Yes (Disabling, Other)
  Sender: FDA-Public Use
  Company Number: US-MERCK-0808USA00341

PATIENT
  Age: 47 Year
  Sex: Female

DRUGS (5)
  1. SINGULAIR [Suspect]
     Indication: ASTHMA
     Route: 048
     Dates: start: 20070501, end: 20070101
  2. SINGULAIR [Suspect]
     Route: 048
     Dates: start: 20070901, end: 20080327
  3. SINGULAIR [Suspect]
     Indication: HYPERSENSITIVITY
     Route: 048
     Dates: start: 20070501, end: 20070101
  4. SINGULAIR [Suspect]
     Route: 048
     Dates: start: 20070901, end: 20080327
  5. EFFEXOR XR [Concomitant]
     Route: 065

REACTIONS (8)
  - DRUG INEFFECTIVE [None]
  - DYSPNOEA [None]
  - FATIGUE [None]
  - LUNG DISORDER [None]
  - PNEUMONIA [None]
  - SOMNOLENCE [None]
  - SUICIDAL IDEATION [None]
  - TOOTH DISORDER [None]
